FAERS Safety Report 9084206 (Version 1)
Quarter: 2013Q1

REPORT INFORMATION
  Report Type: Report from Study
  Country: US (occurrence: US)
  Receive Date: 20130130
  Receipt Date: 20130130
  Transmission Date: 20140127
  Serious: No
  Sender: FDA-Public Use
  Company Number: US-ABBOTT-12P-163-0889324-00

PATIENT
  Age: 50 None
  Sex: Female

DRUGS (16)
  1. HUMIRA [Suspect]
     Indication: RHEUMATOID ARTHRITIS
     Dates: start: 20111014
  2. HYDROCODONE [Suspect]
     Indication: PAIN
  3. PLAQUENIL [Concomitant]
     Indication: PSORIASIS
  4. FOSAMAX [Concomitant]
     Indication: PRODUCT USED FOR UNKNOWN INDICATION
  5. FOLIC ACID [Concomitant]
     Indication: PRODUCT USED FOR UNKNOWN INDICATION
  6. METFORMIN [Concomitant]
     Indication: GLUCOSE TOLERANCE IMPAIRED
     Dosage: IN THE MORNING
  7. GEMFIBROZIL [Concomitant]
     Indication: BLOOD CHOLESTEROL
  8. FAMOTIDINE [Concomitant]
     Indication: GASTROOESOPHAGEAL REFLUX DISEASE
  9. ESTRADIOL [Concomitant]
     Indication: PRODUCT USED FOR UNKNOWN INDICATION
  10. SYNTHROID [Concomitant]
     Indication: HYPOTHYROIDISM
     Dosage: IN THE MORNING
  11. LORATADINE [Concomitant]
     Indication: PRODUCT USED FOR UNKNOWN INDICATION
  12. CALCIUM [Concomitant]
     Indication: PRODUCT USED FOR UNKNOWN INDICATION
  13. CITRACAL + D [Concomitant]
     Indication: PRODUCT USED FOR UNKNOWN INDICATION
  14. ALEVE [Concomitant]
     Indication: ARTHRITIS
     Dosage: 2 IN THE MORNING
  15. TRIAMCINOCLONE [Concomitant]
     Indication: PSORIASIS
     Dosage: STEROID CREAM
     Route: 054
  16. VITAMIN D [Concomitant]
     Dosage: 50,000 IU WEEKLY

REACTIONS (23)
  - Stress [Not Recovered/Not Resolved]
  - Psoriasis [Not Recovered/Not Resolved]
  - Pain [Not Recovered/Not Resolved]
  - Ear pain [Unknown]
  - Ear pain [Not Recovered/Not Resolved]
  - Nodule [Not Recovered/Not Resolved]
  - Pruritus [Not Recovered/Not Resolved]
  - Pruritus [Not Recovered/Not Resolved]
  - Oesophageal pain [Not Recovered/Not Resolved]
  - Incorrect route of drug administration [Not Recovered/Not Resolved]
  - Wrong technique in drug usage process [Not Recovered/Not Resolved]
  - Injection site pain [Recovered/Resolved]
  - Psoriasis [Not Recovered/Not Resolved]
  - Drug dose omission [Not Recovered/Not Resolved]
  - Drug ineffective [Unknown]
  - Fall [Unknown]
  - Pain [Unknown]
  - Pain [Unknown]
  - Mobility decreased [Unknown]
  - Sinusitis [Recovered/Resolved]
  - Rhinalgia [Unknown]
  - Headache [Unknown]
  - House dust allergy [Unknown]
